FAERS Safety Report 7039320-3 (Version None)
Quarter: 2010Q4

REPORT INFORMATION
  Report Type: 
  Country: None (occurrence: None)
  Receive Date: 20101012
  Receipt Date: 20101007
  Transmission Date: 20110411
  Serious: Yes (Death, Other)
  Sender: FDA-Public Use
  Company Number: JP-ASTRAZENECA-2010SE47676

PATIENT
  Sex: Female

DRUGS (1)
  1. XYLOCAINE [Suspect]
     Indication: BREAST PROSTHESIS IMPLANTATION
     Route: 065
     Dates: start: 20100107

REACTIONS (6)
  - CONVULSION [None]
  - DRUG TOXICITY [None]
  - HYPOXIC-ISCHAEMIC ENCEPHALOPATHY [None]
  - LOSS OF CONSCIOUSNESS [None]
  - MULTI-ORGAN FAILURE [None]
  - OVERDOSE [None]
